FAERS Safety Report 8673027 (Version 3)
Quarter: 2013Q2

REPORT INFORMATION
  Report Type: Spontaneous
  Country: US (occurrence: US)
  Receive Date: 20120719
  Receipt Date: 20130425
  Transmission Date: 20140414
  Serious: Yes (Other)
  Sender: FDA-Public Use
  Company Number: US-ELI_LILLY_AND_COMPANY-US201201006896

PATIENT
  Age: 71 Year
  Sex: Female
  Weight: 45 kg

DRUGS (18)
  1. FORTEO [Suspect]
     Indication: OSTEOPOROSIS
     Dosage: 20 UG, QD
     Dates: start: 2011
  2. FORTEO [Suspect]
     Dosage: 20 UG, QD
     Dates: start: 20110907
  3. FORTEO [Suspect]
     Dosage: 20 UG, QD
  4. FORTEO [Suspect]
     Dosage: 20 UG, QD
  5. FORTEO [Suspect]
     Dosage: 20 UG, QD
  6. FORTEO [Suspect]
     Dosage: 20 UG, QD
  7. FORTEO [Suspect]
     Dosage: 20 UG, QD
  8. NITRO                              /00003201/ [Concomitant]
     Indication: CHEST PAIN
  9. VITAMIN D [Concomitant]
     Dosage: UNK
  10. NEXIUM [Concomitant]
     Dosage: 40 MG, UNK
  11. CLONAZEPAM [Concomitant]
     Dosage: 0.5 MG, UNK
  12. PRAVACHOL [Concomitant]
     Dosage: 40 MG, UNK
  13. METOPROLOL [Concomitant]
     Dosage: UNK UNK, BID
  14. AMLODIPINE [Concomitant]
     Indication: BLOOD PRESSURE
     Dosage: 5 MG, UNK
  15. BENAZEPRIL [Concomitant]
     Indication: BLOOD PRESSURE
     Dosage: 40 MG, UNK
  16. PLAVIX [Concomitant]
     Dosage: 75 MG, UNK
  17. TYLENOL                                 /SCH/ [Concomitant]
     Dosage: UNK
  18. ASPIRIN [Concomitant]
     Dosage: UNK

REACTIONS (35)
  - Hip fracture [Recovering/Resolving]
  - Fall [Unknown]
  - Myocardial infarction [Unknown]
  - Musculoskeletal stiffness [Recovering/Resolving]
  - Pain in extremity [Not Recovered/Not Resolved]
  - Myalgia [Not Recovered/Not Resolved]
  - Anxiety [Unknown]
  - Body height decreased [Not Recovered/Not Resolved]
  - Muscular weakness [Unknown]
  - Limb discomfort [Unknown]
  - Hypokinesia [Not Recovered/Not Resolved]
  - Hypokinesia [Recovering/Resolving]
  - Musculoskeletal discomfort [Unknown]
  - Cataract [Unknown]
  - Visual impairment [Unknown]
  - Systemic lupus erythematosus [Not Recovered/Not Resolved]
  - Vitamin D decreased [Unknown]
  - Arthritis [Unknown]
  - Arthropathy [Unknown]
  - Muscle disorder [Unknown]
  - Pain in extremity [Unknown]
  - Increased tendency to bruise [Unknown]
  - Contusion [Unknown]
  - Cardiac disorder [Unknown]
  - Feeling abnormal [Unknown]
  - Injection site bruising [Unknown]
  - Coronary artery occlusion [Unknown]
  - Cardiomegaly [Unknown]
  - Scar [Unknown]
  - Weight decreased [Unknown]
  - Fear [Unknown]
  - Local swelling [Unknown]
  - Coordination abnormal [Unknown]
  - Back pain [Unknown]
  - Dizziness [Unknown]
